FAERS Safety Report 9940062 (Version 1)
Quarter: 2014Q1

REPORT INFORMATION
  Report Type: Report from Study
  Country: DE (occurrence: DE)
  Receive Date: 20140303
  Receipt Date: 20140303
  Transmission Date: 20141002
  Serious: Yes (Other)
  Sender: FDA-Public Use
  Company Number: DE-SA-2014SA022032

PATIENT
  Age: 69 Year
  Sex: Male
  Weight: 95 kg

DRUGS (5)
  1. MULTAQ [Suspect]
     Indication: ATRIAL FIBRILLATION
     Route: 048
     Dates: start: 20120813
  2. ANTITHROMBOTIC AGENTS [Concomitant]
     Indication: ANTICOAGULANT THERAPY
     Dates: start: 20120813
  3. TROMCARDIN [Concomitant]
  4. DIGIMERCK [Concomitant]
  5. DIGIMERCK [Concomitant]
     Dates: start: 20110713

REACTIONS (1)
  - Atrial fibrillation [Unknown]
